FAERS Safety Report 10067835 (Version 1)
Quarter: 2014Q2

REPORT INFORMATION
  Report Type: Spontaneous
  Country: US (occurrence: US)
  Receive Date: 20140409
  Receipt Date: 20140409
  Transmission Date: 20141212
  Serious: No
  Sender: FDA-Public Use
  Company Number: US-BAYER-2014-047979

PATIENT
  Age: 64 Year
  Sex: Female
  Weight: 58.96 kg

DRUGS (1)
  1. ALEVE GELCAPS [Suspect]
     Dosage: 2 DF, BID
     Route: 048
     Dates: start: 2010

REACTIONS (3)
  - Drug ineffective [None]
  - Incorrect dose administered [None]
  - Incorrect drug administration duration [None]
